FAERS Safety Report 4903133-6 (Version None)
Quarter: 2006Q1

REPORT INFORMATION
  Report Type: 
  Country: None (occurrence: None)
  Receive Date: 20060207
  Receipt Date: 20051128
  Transmission Date: 20060701
  Serious: Yes (Death)
  Sender: FDA-Public Use
  Company Number: US-BRISTOL-MYERS SQUIBB COMPANY-13198213

PATIENT
  Age: 86 Year
  Sex: Female

DRUGS (2)
  1. GLUCOPHAGE [Suspect]
  2. KLOTRIX TABS 10 MEQ [Suspect]

REACTIONS (1)
  - CARDIAC FAILURE CONGESTIVE [None]
